FAERS Safety Report 6043675-6 (Version None)
Quarter: 2009Q1

REPORT INFORMATION
  Report Type: 
  Country: None (occurrence: None)
  Receive Date: 20090120
  Receipt Date: 20090113
  Transmission Date: 20090719
  Serious: Yes (Death)
  Sender: FDA-Public Use
  Company Number: US-BRISTOL-MYERS SQUIBB COMPANY-14469050

PATIENT
  Age: 39 Year
  Sex: Female

DRUGS (10)
  1. TRAZODONE HCL [Suspect]
     Route: 048
  2. TRAMADOL HCL [Suspect]
     Route: 048
  3. CARISOPRODOL [Suspect]
     Route: 048
  4. QUETIAPINE [Suspect]
     Route: 048
  5. DULOXETINE HCL [Suspect]
     Route: 048
  6. FEXOFENADINE HCL [Suspect]
     Route: 048
  7. NAPROXEN [Suspect]
     Route: 048
  8. CLONAZEPAM [Suspect]
     Route: 048
  9. ETHANOL [Suspect]
     Route: 048
  10. THYROID SUPPLEMENT [Suspect]
     Route: 048

REACTIONS (1)
  - COMPLETED SUICIDE [None]
